FAERS Safety Report 23824402 (Version 1)
Quarter: 2024Q2

REPORT INFORMATION
  Report Type: Spontaneous
  Country: ZA (occurrence: None)
  Receive Date: 20240507
  Receipt Date: 20240507
  Transmission Date: 20240716
  Serious: Yes (Hospitalization)
  Sender: FDA-Public Use
  Company Number: 2024A102958

PATIENT
  Sex: Female

DRUGS (11)
  1. BUDESONIDE\FORMOTEROL FUMARATE DIHYDRATE [Suspect]
     Active Substance: BUDESONIDE\FORMOTEROL FUMARATE DIHYDRATE
     Indication: Asthma
     Dosage: 80 UG, UNKNOWN UNKNOWN
     Route: 055
  2. SPIRACTIN [Concomitant]
     Indication: Hypertension
     Route: 048
  3. SPIRACTIN [Concomitant]
     Indication: Oedema
     Route: 048
  4. SPIRACTIN [Concomitant]
     Indication: Cardiac failure
     Route: 048
  5. SPIRACTIN [Concomitant]
     Indication: Hepatic cirrhosis
     Route: 048
  6. SPIRACTIN [Concomitant]
     Indication: Renal impairment
     Route: 048
  7. AMIODARONE [Concomitant]
     Active Substance: AMIODARONE
     Indication: Arrhythmia
     Route: 048
  8. AMIODARONE [Concomitant]
     Active Substance: AMIODARONE
     Indication: Arrhythmia
     Route: 048
  9. BISOPROLOL FUMARATE [Concomitant]
     Active Substance: BISOPROLOL FUMARATE
     Indication: Hypertension
     Route: 048
  10. BISOPROLOL FUMARATE [Concomitant]
     Active Substance: BISOPROLOL FUMARATE
     Indication: Cardiac failure
     Route: 048
  11. TAMOLTRA [Concomitant]
     Indication: Pain
     Route: 048

REACTIONS (1)
  - Cardiac disorder [Unknown]
